FAERS Safety Report 9720930 (Version 1)
Quarter: 2013Q4

REPORT INFORMATION
  Report Type: Spontaneous
  Country: GB (occurrence: GB)
  Receive Date: 20131129
  Receipt Date: 20131129
  Transmission Date: 20140711
  Serious: Yes (Other)
  Sender: FDA-Public Use
  Company Number: GB-BRISTOL-MYERS SQUIBB COMPANY-19848308

PATIENT
  Sex: 0

DRUGS (3)
  1. METFORMIN HCL [Suspect]
     Route: 064
  2. CLOMID [Suspect]
     Route: 064
  3. GAVISCON [Concomitant]
     Route: 064

REACTIONS (1)
  - Exomphalos [Unknown]
